FAERS Safety Report 6921538-9 (Version None)
Quarter: 2010Q3

REPORT INFORMATION
  Report Type: 
  Country: None (occurrence: None)
  Receive Date: 20100805
  Receipt Date: 20100426
  Transmission Date: 20110219
  Serious: No
  Sender: FDA-Public Use
  Company Number: US-001963

PATIENT
  Sex: Male

DRUGS (2)
  1. DEGARELIX [Suspect]
     Indication: PROSTATE CANCER
     Dosage: (SUBCUTANEOUS)
     Route: 058
     Dates: start: 20090101
  2. ENALAPRIL MALEATE [Concomitant]

REACTIONS (5)
  - COUGH [None]
  - DRY MOUTH [None]
  - FATIGUE [None]
  - RESPIRATORY TRACT CONGESTION [None]
  - URINARY TRACT INFECTION [None]
